FAERS Safety Report 8520172-7 (Version None)
Quarter: 2012Q3

REPORT INFORMATION
  Report Type: 
  Country: None (occurrence: None)
  Receive Date: 20120705
  Receipt Date: 20120621
  Transmission Date: 20120928
  Serious: Yes (Hospitalization)
  Sender: FDA-Public Use
  Company Number: 2012SP034754

PATIENT
  Age: 58 Year
  Sex: Male

DRUGS (5)
  1. CANDESARTAN [Concomitant]
  2. RIBAVIRIN [Suspect]
     Indication: CHRONIC HEPATITIS
     Dosage: 1000 MG;QD;PO
     Route: 048
     Dates: start: 20120502
  3. ROCEPREVIR (SCH-503034) [Suspect]
     Indication: CHRONIC HEPATITIS
     Dosage: 800 MG;TID;PO
     Route: 048
     Dates: start: 20120530
  4. PEGINTERFERON ALFA-2B [Suspect]
     Indication: CHRONIC HEPATITIS
     Dosage: 120 MCG; QW;SC
     Route: 058
     Dates: start: 20120502
  5. ESKIM [Concomitant]

REACTIONS (1)
  - HYPERTRIGLYCERIDAEMIA [None]
